FAERS Safety Report 7730721-4 (Version None)
Quarter: 2011Q3

REPORT INFORMATION
  Report Type: 
  Country: None (occurrence: None)
  Receive Date: 20110901
  Receipt Date: 20110901
  Transmission Date: 20111222
  Serious: Yes (Hospitalization)
  Sender: FDA-Public Use
  Company Number: None

PATIENT
  Age: 81 Year
  Sex: Male
  Weight: 62.5 kg

DRUGS (15)
  1. AV-951 [Suspect]
     Indication: COLON CANCER
     Dosage: 1 MG PO QD
     Route: 048
     Dates: start: 20110318, end: 20110826
  2. NORVASC [Concomitant]
  3. ATENOLOL [Concomitant]
  4. PERIDEX [Concomitant]
  5. PHOS-NAK [Concomitant]
  6. POTASSIUM CHLORIDE SLOW RELEASE TAB [Concomitant]
  7. ZOCOR [Concomitant]
  8. LISINOPRIL [Concomitant]
  9. EVEROLIMUS [Suspect]
     Indication: COLON CANCER
     Dosage: 10 MG PO QD
     Route: 048
     Dates: start: 20110318, end: 20110819
  10. AMLODIPINE [Concomitant]
  11. ATIVAN [Concomitant]
  12. LOMOTIL [Concomitant]
  13. ZOFRAN [Concomitant]
  14. ASPIRIN [Concomitant]
  15. COMPAZINE [Concomitant]

REACTIONS (2)
  - CHEST DISCOMFORT [None]
  - LOBAR PNEUMONIA [None]
